FAERS Safety Report 5463445-7 (Version None)
Quarter: 2007Q3

REPORT INFORMATION
  Report Type: 
  Country: None (occurrence: None)
  Receive Date: 20070920
  Receipt Date: 20070907
  Transmission Date: 20080115
  Serious: Yes (Hospitalization)
  Sender: FDA-Public Use
  Company Number: US-ELI_LILLY_AND_COMPANY-US200709001464

PATIENT
  Age: 39 Year
  Sex: Male
  Weight: 94.331 kg

DRUGS (1)
  1. CYMBALTA [Suspect]
     Indication: PAIN
     Dates: start: 20070501, end: 20070610

REACTIONS (2)
  - BLOOD PRESSURE INCREASED [None]
  - CHEST PAIN [None]
